FAERS Safety Report 18734043 (Version 1)
Quarter: 2021Q1

REPORT INFORMATION
  Report Type: Spontaneous
  Country: CN (occurrence: CN)
  Receive Date: 20210113
  Receipt Date: 20210113
  Transmission Date: 20210419
  Serious: Yes (Other)
  Sender: FDA-Public Use
  Company Number: CN-ASTRAZENECA-2019SF84031

PATIENT
  Age: 26549 Day
  Sex: Female

DRUGS (3)
  1. GEFITINIB. [Suspect]
     Active Substance: GEFITINIB
     Route: 048
  2. TAGRISSO [Suspect]
     Active Substance: OSIMERTINIB
     Route: 048
  3. TAGRISSO [Suspect]
     Active Substance: OSIMERTINIB
     Route: 048
     Dates: start: 20190609, end: 20191213

REACTIONS (3)
  - Acquired gene mutation [Unknown]
  - Drug resistance [Unknown]
  - Asthenia [Not Recovered/Not Resolved]

NARRATIVE: CASE EVENT DATE: 20190704
